FAERS Safety Report 4645850-1 (Version None)
Quarter: 2005Q2

REPORT INFORMATION
  Report Type: 
  Country: None (occurrence: None)
  Receive Date: 20050422
  Receipt Date: 20050422
  Transmission Date: 20051028
  Serious: No
  Sender: FDA-Public Use
  Company Number: None

PATIENT
  Age: 73 Year
  Sex: Female
  Weight: 136.0791 kg

DRUGS (1)
  1. LOVENOX [Suspect]
     Indication: DEEP VEIN THROMBOSIS
     Dosage: 135 MG Q 12 HOURS
     Dates: start: 20050215, end: 20050217

REACTIONS (5)
  - ANTI FACTOR X ANTIBODY POSITIVE [None]
  - BRADYCARDIA [None]
  - CARDIAC ARREST [None]
  - CATHETER SITE HAEMORRHAGE [None]
  - HAEMATOCRIT DECREASED [None]
